FAERS Safety Report 5698077-9 (Version None)
Quarter: 2008Q2

REPORT INFORMATION
  Report Type: 
  Country: None (occurrence: None)
  Receive Date: 20080404
  Receipt Date: 20080404
  Transmission Date: 20081010
  Serious: Yes (Other)
  Sender: FDA-Public Use
  Company Number: None

PATIENT
  Age: 10 Year
  Sex: Female
  Weight: 45.3597 kg

DRUGS (2)
  1. SINGULAIR [Suspect]
     Indication: ASTHMA
     Dosage: CHEW ONE TABLET ONCE DAILY PO
     Route: 048
     Dates: start: 20060101, end: 20080328
  2. SINGULAIR [Suspect]
     Indication: SEASONAL ALLERGY
     Dosage: CHEW ONE TABLET ONCE DAILY PO
     Route: 048
     Dates: start: 20060101, end: 20080328

REACTIONS (6)
  - ABNORMAL BEHAVIOUR [None]
  - ANGER [None]
  - DEPRESSION [None]
  - DISTURBANCE IN ATTENTION [None]
  - HYPERPHAGIA [None]
  - STOMACH DISCOMFORT [None]
